FAERS Safety Report 12169111 (Version 1)
Quarter: 2016Q1

REPORT INFORMATION
  Report Type: Spontaneous
  Country: PL (occurrence: PL)
  Receive Date: 20160310
  Receipt Date: 20160310
  Transmission Date: 20160526
  Serious: Yes (Hospitalization)
  Sender: FDA-Public Use
  Company Number: PHHY2016PL028620

PATIENT
  Age: 3 Year
  Sex: Female
  Weight: 13.5 kg

DRUGS (2)
  1. OSPAMOX [Suspect]
     Active Substance: AMOXICILLIN
     Indication: RESPIRATORY TRACT INFECTION
     Dosage: 5 ML, BID
     Route: 048
     Dates: start: 20141109, end: 20141115
  2. PECTODRILL [Suspect]
     Active Substance: CARBOCYSTEINE
     Indication: RESPIRATORY TRACT INFECTION
     Dosage: 2.5 ML, TID
     Route: 048
     Dates: start: 20141109, end: 20141115

REACTIONS (5)
  - Erythema [Recovering/Resolving]
  - Petechiae [Recovering/Resolving]
  - Face oedema [Recovering/Resolving]
  - Rash macular [Recovering/Resolving]
  - Eyelid oedema [Recovering/Resolving]

NARRATIVE: CASE EVENT DATE: 20141117
